FAERS Safety Report 5266043-3 (Version None)
Quarter: 2007Q1

REPORT INFORMATION
  Report Type: 
  Country: None (occurrence: None)
  Receive Date: 20070313
  Receipt Date: 20070313
  Transmission Date: 20070707
  Serious: Yes (Life-Threatening, Hospitalization)
  Sender: FDA-Public Use
  Company Number: None

PATIENT
  Age: 1 Year
  Sex: Male
  Weight: 13 kg

DRUGS (1)
  1. CARBAMAZEPINE [Suspect]
     Indication: CONVULSION
     Dosage: PO
     Route: 048
     Dates: start: 20010925

REACTIONS (3)
  - ABDOMINAL PAIN [None]
  - ADRENOCORTICAL INSUFFICIENCY ACUTE [None]
  - VOMITING [None]
